FAERS Safety Report 12093211 (Version 1)
Quarter: 2016Q1

REPORT INFORMATION
  Report Type: Spontaneous
  Country: US (occurrence: US)
  Receive Date: 20160219
  Receipt Date: 20160219
  Transmission Date: 20160526
  Serious: No
  Sender: FDA-Public Use
  Company Number: US-PFIZER INC-2016087050

PATIENT
  Age: 54 Year
  Sex: Male

DRUGS (1)
  1. AXITINIB [Suspect]
     Active Substance: AXITINIB
     Indication: METASTATIC RENAL CELL CARCINOMA
     Dosage: 5 MG, 2X/DAY

REACTIONS (7)
  - Blood pressure increased [Unknown]
  - Fatigue [Recovering/Resolving]
  - Flatulence [Unknown]
  - Decreased appetite [Unknown]
  - Metastatic renal cell carcinoma [Unknown]
  - Disease progression [Unknown]
  - Nausea [Recovering/Resolving]
